FAERS Safety Report 6744160-6 (Version None)
Quarter: 2010Q2

REPORT INFORMATION
  Report Type: 
  Country: None (occurrence: None)
  Receive Date: 20100527
  Receipt Date: 20100519
  Transmission Date: 20101027
  Serious: Yes (Hospitalization)
  Sender: FDA-Public Use
  Company Number: FR-BAXTER-2010BH011239

PATIENT
  Age: 80 Year
  Sex: Male

DRUGS (9)
  1. ENDOXAN BAXTER [Suspect]
     Indication: B-CELL LYMPHOMA
     Route: 042
     Dates: start: 20090224, end: 20090727
  2. DOXORUBICIN HCL [Suspect]
     Indication: B-CELL LYMPHOMA
     Route: 042
     Dates: start: 20090224, end: 20090727
  3. VINCRISTINE SULFATE [Suspect]
     Indication: B-CELL LYMPHOMA
     Route: 042
     Dates: start: 20090224, end: 20090727
  4. PREDNISONE TAB [Suspect]
     Indication: B-CELL LYMPHOMA
     Route: 042
     Dates: start: 20090224, end: 20090727
  5. MABTHERA [Suspect]
     Indication: B-CELL LYMPHOMA
     Route: 042
     Dates: start: 20090224, end: 20090727
  6. CORDARONE [Suspect]
     Indication: ARRHYTHMIA
     Route: 048
  7. PREVISCAN [Concomitant]
     Indication: DRUG USE FOR UNKNOWN INDICATION
     Route: 048
  8. LORAZEPAM [Concomitant]
     Indication: DRUG USE FOR UNKNOWN INDICATION
     Route: 048
  9. FRAXODI [Concomitant]
     Indication: DRUG USE FOR UNKNOWN INDICATION
     Route: 058

REACTIONS (1)
  - NEUROPATHY PERIPHERAL [None]
